FAERS Safety Report 12284825 (Version 1)
Quarter: 2016Q2

REPORT INFORMATION
  Report Type: Spontaneous
  Country: US (occurrence: US)
  Receive Date: 20160420
  Receipt Date: 20160420
  Transmission Date: 20160815
  Serious: No
  Sender: FDA-Public Use
  Company Number: US-TEVA-647819USA

PATIENT
  Age: 58 Year
  Sex: Female

DRUGS (1)
  1. ZECUITY [Suspect]
     Active Substance: SUMATRIPTAN SUCCINATE
     Dosage: USED 2 PATCHES
     Route: 062
     Dates: start: 201601, end: 201601

REACTIONS (1)
  - Headache [Unknown]

NARRATIVE: CASE EVENT DATE: 201601
